FAERS Safety Report 9135531 (Version 1)
Quarter: 2013Q1

REPORT INFORMATION
  Report Type: Spontaneous
  Country: FR (occurrence: FR)
  Receive Date: 20130304
  Receipt Date: 20130304
  Transmission Date: 20140127
  Serious: Yes (Hospitalization, Other)
  Sender: FDA-Public Use
  Company Number: FR-PFIZER INC-2013071452

PATIENT
  Age: 82 Year
  Sex: Male

DRUGS (13)
  1. LYRICA [Suspect]
     Dosage: 25 MG AND 50 MG
     Route: 048
     Dates: start: 20121107, end: 20121112
  2. LYRICA [Suspect]
     Dosage: 50 MG AND 100 MG
     Dates: start: 20121113, end: 20121116
  3. IXPRIM [Suspect]
     Dosage: UNK
     Dates: start: 20121103, end: 20121116
  4. MIRTAZAPINE [Suspect]
     Dosage: 15 MG, 1X/DAY
     Route: 048
     Dates: start: 20121113, end: 20121116
  5. UROREC [Concomitant]
     Dosage: 4 MG A DAY
     Route: 048
     Dates: start: 20120602
  6. LAMALINE [Concomitant]
     Dosage: 2 DF, 3X/DAY
     Route: 048
  7. MECIR [Concomitant]
     Dosage: 0.4 MG, UNK
     Route: 048
  8. INEGY [Concomitant]
     Dosage: 1 DF, 1X/DAY
  9. COVERSYL [Concomitant]
     Dosage: 10 MG, UNK
  10. LASILIX [Concomitant]
     Dosage: 40, 1 DF IN THE MORNING
  11. INEXIUM [Concomitant]
     Dosage: 20 MG, 1X/DAY
  12. ZYLORIC [Concomitant]
     Dosage: 200 IN THE MORNING
  13. PROCORALAN [Concomitant]
     Dosage: 5 MG, 1X/DAY

REACTIONS (7)
  - Urinary retention [Recovered/Resolved]
  - Faecaloma [Recovered/Resolved]
  - Confusional state [Recovered/Resolved]
  - Fall [Recovered/Resolved]
  - Toxic nodular goitre [Recovered/Resolved]
  - Atrial fibrillation [Recovered/Resolved]
  - Constipation [Recovered/Resolved]
